FAERS Safety Report 16560096 (Version 1)
Quarter: 2019Q3

REPORT INFORMATION
  Report Type: Spontaneous
  Country: US (occurrence: US)
  Receive Date: 20190711
  Receipt Date: 20190711
  Transmission Date: 20191004
  Serious: Yes (Other)
  Sender: FDA-Public Use
  Company Number: US-TEVA-2019-US-1074015

PATIENT

DRUGS (2)
  1. DIAZOXIDE [Suspect]
     Active Substance: DIAZOXIDE
     Indication: HYPOGLYCAEMIA NEONATAL
     Route: 065
  2. GLUCOSE [Concomitant]
     Active Substance: DEXTROSE
     Indication: HYPOGLYCAEMIA NEONATAL
     Dosage: HIGH GLUCOSE INFUSION RATE [EXACT INFUSION RATE NOT STATED]
     Route: 050

REACTIONS (1)
  - Therapy non-responder [Unknown]
